FAERS Safety Report 5359061-8 (Version None)
Quarter: 2007Q2

REPORT INFORMATION
  Report Type: 
  Country: None (occurrence: None)
  Receive Date: 20070615
  Receipt Date: 20070604
  Transmission Date: 20071010
  Serious: Yes (Other)
  Sender: FDA-Public Use
  Company Number: FR-ELI_LILLY_AND_COMPANY-FR200705002192

PATIENT
  Age: 83 Year
  Sex: Female
  Weight: 71 kg

DRUGS (7)
  1. FORTEO [Suspect]
     Indication: OSTEOPOROSIS
     Dosage: 20 UG, DAILY (1/D)
     Route: 058
     Dates: start: 20060807, end: 20070503
  2. TENORDATE [Concomitant]
     Indication: HYPERTENSION
     Dosage: 2 D/F, DAILY (1/D)
     Route: 048
  3. MEDIVEINE [Concomitant]
     Indication: ANGIOPATHY
     Dosage: 1 D/F, DAILY (1/D)
     Route: 048
     Dates: end: 20070512
  4. CONTRAMAL [Concomitant]
     Indication: PAIN
     Dosage: 2 D/F, UNKNOWN
     Route: 048
     Dates: start: 20060201, end: 20070512
  5. DAFALGAN [Concomitant]
     Indication: PAIN
     Dosage: 3 D/F, UNKNOWN
     Route: 048
     Dates: start: 20060201, end: 20070512
  6. CALTRATE [Concomitant]
     Dates: end: 20070512
  7. PROXETINE [Concomitant]

REACTIONS (1)
  - THROMBOCYTOPENIA [None]
